FAERS Safety Report 20258174 (Version 2)
Quarter: 2022Q1

REPORT INFORMATION
  Report Type: Spontaneous
  Country: US (occurrence: US)
  Receive Date: 20211230
  Receipt Date: 20220307
  Transmission Date: 20220424
  Serious: Yes (Death, Other)
  Sender: FDA-Public Use
  Company Number: US-SA-SAC20211229000083

PATIENT
  Age: 77 Year
  Sex: Female

DRUGS (1)
  1. ZANTAC [Suspect]
     Active Substance: RANITIDINE HYDROCHLORIDE
     Indication: Gastrooesophageal reflux disease
     Dosage: 150 MG, QD
     Route: 065
     Dates: start: 199801, end: 201901

REACTIONS (1)
  - Gastric cancer [Fatal]

NARRATIVE: CASE EVENT DATE: 20190101
